FAERS Safety Report 7259610-9 (Version None)
Quarter: 2011Q1

REPORT INFORMATION
  Report Type: 
  Country: None (occurrence: None)
  Receive Date: 20110130
  Receipt Date: 20100917
  Transmission Date: 20110831
  Serious: Yes (Other)
  Sender: FDA-Public Use
  Company Number: US-ABBOTT-10P-163-0620124-00

PATIENT
  Sex: Female
  Weight: 86.26 kg

DRUGS (1)
  1. HUMIRA [Suspect]
     Indication: PSORIATIC ARTHROPATHY
     Dates: start: 20100105

REACTIONS (4)
  - BONE PAIN [None]
  - INFECTION [None]
  - VULVOVAGINAL MYCOTIC INFECTION [None]
  - PSORIATIC ARTHROPATHY [None]
